FAERS Safety Report 24593867 (Version 1)
Quarter: 2024Q4

REPORT INFORMATION
  Report Type: Spontaneous
  Country: US (occurrence: None)
  Receive Date: 20241108
  Receipt Date: 20241108
  Transmission Date: 20250114
  Serious: Yes (Other)
  Sender: Public
  Company Number: None

PATIENT
  Age: 25 Month
  Sex: Male
  Weight: 13.05 kg

DRUGS (1)
  1. OSELTAMIVIR PHOSPHATE [Suspect]
     Active Substance: OSELTAMIVIR PHOSPHATE
     Indication: Influenza
     Dosage: FREQUENCY : TWICE A DAY;?
     Route: 048
     Dates: start: 20241025, end: 20241026

REACTIONS (15)
  - Neuropsychological symptoms [None]
  - Affective disorder [None]
  - Anger [None]
  - Aggression [None]
  - Crying [None]
  - Anger [None]
  - Panic reaction [None]
  - Agitation [None]
  - Screaming [None]
  - Physical assault [None]
  - Sleep terror [None]
  - Hallucination [None]
  - Abnormal behaviour [None]
  - Sleep disorder [None]
  - Middle insomnia [None]

NARRATIVE: CASE EVENT DATE: 20241025
